FAERS Safety Report 17643980 (Version 1)
Quarter: 2020Q2

REPORT INFORMATION
  Report Type: Spontaneous
  Country: CA (occurrence: CA)
  Receive Date: 20200408
  Receipt Date: 20200408
  Transmission Date: 20200713
  Serious: Yes (Death, Hospitalization, Other)
  Sender: FDA-Public Use
  Company Number: CA-DRREDDYS-USA/CAN/20/0121704

PATIENT
  Age: 49 Year
  Sex: Female
  Weight: 71 kg

DRUGS (1)
  1. AZACITIDINE. [Suspect]
     Active Substance: AZACITIDINE
     Indication: PRODUCT USED FOR UNKNOWN INDICATION
     Route: 065

REACTIONS (15)
  - Pneumonia [Fatal]
  - Polyneuropathy in malignant disease [Fatal]
  - Lung opacity [Fatal]
  - Blast cells [Fatal]
  - Pulmonary mass [Fatal]
  - Drug ineffective [Fatal]
  - Atelectasis [Fatal]
  - Red blood cell count increased [Fatal]
  - Cytopenia [Fatal]
  - Hypotension [Fatal]
  - Sepsis [Fatal]
  - Pleural effusion [Fatal]
  - Acute myeloid leukaemia recurrent [Fatal]
  - Gastrointestinal wall thickening [Fatal]
  - Off label use [Fatal]
